FAERS Safety Report 8735135 (Version 2)
Quarter: 2013Q1

REPORT INFORMATION
  Report Type: Spontaneous
  Country: US (occurrence: US)
  Receive Date: 20120821
  Receipt Date: 20130228
  Transmission Date: 20140127
  Serious: Yes (Hospitalization, Other)
  Sender: FDA-Public Use
  Company Number: US-ROCHE-1061187

PATIENT
  Age: 56 Year
  Sex: Male
  Weight: 88.53 kg

DRUGS (2)
  1. ACCUTANE [Suspect]
     Indication: ACNE
     Route: 065
     Dates: start: 19890731, end: 198912
  2. ACCUTANE [Suspect]
     Route: 065
     Dates: start: 19900501, end: 19900615

REACTIONS (8)
  - Colitis ulcerative [Unknown]
  - Inflammatory bowel disease [Unknown]
  - Mental disorder [Unknown]
  - Anal fistula [Unknown]
  - Cervical radiculopathy [Recovering/Resolving]
  - Carpal tunnel syndrome [Unknown]
  - Blood cholesterol increased [Unknown]
  - Blood triglycerides increased [Unknown]
